FAERS Safety Report 15901119 (Version 5)
Quarter: 2019Q1

REPORT INFORMATION
  Report Type: Spontaneous
  Country: DE (occurrence: DE)
  Receive Date: 20190201
  Receipt Date: 20190307
  Transmission Date: 20190417
  Serious: Yes (Hospitalization, Other)
  Sender: FDA-Public Use
  Company Number: PHHY2019DE001599

PATIENT
  Age: 51 Year
  Sex: Male

DRUGS (6)
  1. TACROLIMUS. [Suspect]
     Active Substance: TACROLIMUS
     Indication: PULMONARY ARTERIAL HYPERTENSION
     Dosage: AIMING FOR A GOAL TROUGH BLOOD LEVEL OF 1.5-2.5 NG/ML
     Route: 065
  2. MACITENTAN [Suspect]
     Active Substance: MACITENTAN
     Indication: PULMONARY ARTERIAL HYPERTENSION
     Dosage: UNK
     Route: 065
  3. VENTAVIS [Suspect]
     Active Substance: ILOPROST
     Indication: PULMONARY ARTERIAL HYPERTENSION
     Dosage: UNK
     Route: 045
  4. OPSUMIT [Suspect]
     Active Substance: MACITENTAN
     Indication: PULMONARY ARTERIAL HYPERTENSION
     Dosage: UNK
     Route: 048
  5. ILOPROST. [Suspect]
     Active Substance: ILOPROST
     Indication: PULMONARY ARTERIAL HYPERTENSION
     Route: 055
  6. SILDENAFIL. [Suspect]
     Active Substance: SILDENAFIL
     Indication: PULMONARY ARTERIAL HYPERTENSION
     Dosage: UNK
     Route: 065
     Dates: start: 2006

REACTIONS (10)
  - Gastrointestinal haemorrhage [Recovered/Resolved]
  - Disease progression [Unknown]
  - Cardiac index increased [Unknown]
  - Epistaxis [Recovering/Resolving]
  - Pulmonary arterial hypertension [Unknown]
  - Spontaneous intrahepatic portosystemic venous shunt [Unknown]
  - Off label use [Unknown]
  - Condition aggravated [Unknown]
  - Brain natriuretic peptide increased [Unknown]
  - Pulmonary vascular resistance abnormality [Unknown]

NARRATIVE: CASE EVENT DATE: 201010
